FAERS Safety Report 20847870 (Version 1)
Quarter: 2022Q2

REPORT INFORMATION
  Report Type: Spontaneous
  Country: JP (occurrence: JP)
  Receive Date: 20220519
  Receipt Date: 20220519
  Transmission Date: 20220720
  Serious: Yes (Death, Other)
  Sender: FDA-Public Use
  Company Number: JP-BAXTER-2022BAX010293

PATIENT
  Age: 6 Decade
  Sex: Female
  Weight: 100 kg

DRUGS (1)
  1. DOXORUBICIN [Suspect]
     Active Substance: DOXORUBICIN
     Indication: Ovarian cancer
     Dosage: 20 MG, INTRAVENOUS NOT OTHERWISE SPECIFIED (RECEIVED UNTIL 3RD OR 4TH DOSE)
     Route: 042

REACTIONS (3)
  - Arrhythmia [Fatal]
  - Hyperkalaemia [Fatal]
  - Renal impairment [Unknown]

NARRATIVE: CASE EVENT DATE: 20190720
